FAERS Safety Report 23292582 (Version 1)
Quarter: 2023Q4

REPORT INFORMATION
  Report Type: Spontaneous
  Country: US (occurrence: None)
  Receive Date: 20231212
  Receipt Date: 20231212
  Transmission Date: 20240109
  Serious: Yes (Disabling)
  Sender: FDA-Public Use
  Company Number: None

PATIENT
  Age: 52 Year
  Sex: Female
  Weight: 78.75 kg

DRUGS (6)
  1. PROHANCE [Suspect]
     Active Substance: GADOTERIDOL
     Indication: Magnetic resonance imaging
     Dates: start: 20231115, end: 20231115
  2. PROHANCE [Suspect]
     Active Substance: GADOTERIDOL
     Indication: Scan with contrast
  3. OCREVUS [Concomitant]
     Active Substance: OCRELIZUMAB
  4. HRT estrogen patch [Concomitant]
  5. PROGESTERONE [Concomitant]
     Active Substance: PROGESTERONE
  6. Topical products for rosacea [Concomitant]

REACTIONS (4)
  - Headache [None]
  - Head discomfort [None]
  - Dizziness [None]
  - Contrast media reaction [None]

NARRATIVE: CASE EVENT DATE: 20231115
